FAERS Safety Report 15280337 (Version 1)
Quarter: 2018Q3

REPORT INFORMATION
  Report Type: Spontaneous
  Country: FR (occurrence: FR)
  Receive Date: 20180815
  Receipt Date: 20180815
  Transmission Date: 20181010
  Serious: Yes (Hospitalization)
  Sender: FDA-Public Use
  Company Number: FR-PFIZER INC-2018320190

PATIENT
  Age: 57 Year
  Sex: Male
  Weight: 62 kg

DRUGS (3)
  1. IRINOTECAN HCL [Suspect]
     Active Substance: IRINOTECAN HYDROCHLORIDE
     Indication: COLON CANCER
     Dosage: 340 MG, SINGLE
     Route: 041
     Dates: start: 20180411, end: 2018
  2. FLUOROURACIL. [Suspect]
     Active Substance: FLUOROURACIL
     Indication: COLON CANCER
     Dosage: 4550 MG, SINGLE
     Route: 041
     Dates: start: 20180411, end: 2018
  3. AVASTIN [Suspect]
     Active Substance: BEVACIZUMAB
     Indication: COLON CANCER
     Dosage: 325 MG, SINGLE
     Route: 041
     Dates: start: 20180411, end: 2018

REACTIONS (2)
  - Ascites [Recovered/Resolved]
  - Neoplasm progression [Recovered/Resolved]

NARRATIVE: CASE EVENT DATE: 20180411
